FAERS Safety Report 9515383 (Version 2)
Quarter: 2013Q3

REPORT INFORMATION
  Report Type: Spontaneous
  Country: GB (occurrence: None)
  Receive Date: 20130909
  Receipt Date: 20130923
  Transmission Date: 20140515
  Serious: Yes (Hospitalization)
  Sender: FDA-Public Use
  Company Number: 2013GB0353

PATIENT
  Sex: Female

DRUGS (1)
  1. ANAKINRA [Suspect]
     Indication: AUTOINFLAMMATORY DISEASE
     Dosage: 100 MG, 1 IN 1 D
     Dates: start: 200810, end: 200812

REACTIONS (3)
  - Mucous membrane disorder [None]
  - Respiratory disorder [None]
  - Disease recurrence [None]
